FAERS Safety Report 20184349 (Version 1)
Quarter: 2021Q4

REPORT INFORMATION
  Report Type: Spontaneous
  Country: US (occurrence: US)
  Receive Date: 20211214
  Receipt Date: 20211214
  Transmission Date: 20220303
  Serious: Yes (Hospitalization)
  Sender: FDA-Public Use
  Company Number: US-BEH-2021139037

PATIENT
  Age: 21 Year
  Sex: Female

DRUGS (1)
  1. HIZENTRA [Suspect]
     Active Substance: HUMAN IMMUNOGLOBULIN G
     Indication: Nervous system disorder
     Dosage: 14 GRAM, BIW, EVERY 4 DAYS
     Route: 058
     Dates: start: 202004

REACTIONS (6)
  - Anaphylactic reaction [Unknown]
  - No adverse event [Unknown]
  - Off label use [Unknown]
  - Headache [Unknown]
  - Feeling cold [Unknown]
  - Heart rate irregular [Unknown]

NARRATIVE: CASE EVENT DATE: 20211101
